FAERS Safety Report 24386342 (Version 1)
Quarter: 2024Q4

REPORT INFORMATION
  Report Type: Spontaneous
  Country: US (occurrence: US)
  Receive Date: 20241001
  Receipt Date: 20241001
  Transmission Date: 20250114
  Serious: No
  Sender: AMGEN
  Company Number: US-AMGEN-USASP2024193747

PATIENT
  Age: 23 Year
  Sex: Male

DRUGS (1)
  1. RAVICTI [Suspect]
     Active Substance: GLYCEROL PHENYLBUTYRATE
     Indication: Amino acid metabolism disorder
     Dosage: 5.5 MILLILITER, TID WITH FOOD
     Route: 048
     Dates: start: 20240809

REACTIONS (2)
  - Inappropriate schedule of product administration [Unknown]
  - Headache [Unknown]

NARRATIVE: CASE EVENT DATE: 20240101
